FAERS Safety Report 5961875-8 (Version None)
Quarter: 2008Q4

REPORT INFORMATION
  Report Type: 
  Country: None (occurrence: None)
  Receive Date: 20081121
  Receipt Date: 20080805
  Transmission Date: 20090506
  Serious: No
  Sender: FDA-Public Use
  Company Number: US-BRISTOL-MYERS SQUIBB COMPANY-14288856

PATIENT
  Age: 56 Year
  Sex: Male
  Weight: 72 kg

DRUGS (3)
  1. AVALIDE [Suspect]
     Indication: HYPERTENSION
  2. LESCOL [Concomitant]
  3. IBUPROFEN TABLETS [Concomitant]

REACTIONS (2)
  - FATIGUE [None]
  - PAIN IN EXTREMITY [None]
